FAERS Safety Report 7987078-3 (Version None)
Quarter: 2011Q4

REPORT INFORMATION
  Report Type: 
  Country: None (occurrence: None)
  Receive Date: 20111216
  Receipt Date: 20110929
  Transmission Date: 20120403
  Serious: No
  Sender: FDA-Public Use
  Company Number: US-BRISTOL-MYERS SQUIBB COMPANY-16114324

PATIENT
  Age: 2 Decade
  Sex: Female

DRUGS (4)
  1. ABILIFY [Suspect]
  2. LAMICTAL [Concomitant]
  3. PHENERGAN [Concomitant]
  4. CO-GESIC [Concomitant]

REACTIONS (1)
  - DRUG SCREEN FALSE POSITIVE [None]
